FAERS Safety Report 4899279-1 (Version None)
Quarter: 2006Q1

REPORT INFORMATION
  Report Type: 
  Country: None (occurrence: None)
  Receive Date: 20060131
  Receipt Date: 20060120
  Transmission Date: 20060701
  Serious: Yes (Death, Life-Threatening, Disabling)
  Sender: FDA-Public Use
  Company Number: HQWYE458823JAN06

PATIENT
  Age: 74 Year
  Sex: Male

DRUGS (3)
  1. MYLOTARG [Suspect]
     Indication: ACUTE MYELOID LEUKAEMIA
     Dosage: 9 MG/M^2 1X PER DAY, INTRAVENOUS DRIP
     Route: 041
     Dates: start: 20051121, end: 20051121
  2. ACLARUBICIN HYDROCHLORIDE (ACLARUBICIN HYDROCHLORIDE) [Concomitant]
  3. CYTARABINE [Concomitant]

REACTIONS (6)
  - ACUTE MYELOID LEUKAEMIA [None]
  - BLOOD POTASSIUM DECREASED [None]
  - FEBRILE NEUTROPENIA [None]
  - HYPOXIA [None]
  - MALIGNANT NEOPLASM PROGRESSION [None]
  - VENTRICULAR TACHYCARDIA [None]
